FAERS Safety Report 9236443 (Version 1)
Quarter: 2013Q1

REPORT INFORMATION
  Report Type: Spontaneous
  Country: US (occurrence: None)
  Receive Date: 20121031
  Receipt Date: 20121031
  Transmission Date: 20140127
  Serious: No
  Sender: FDA-Public Use
  Company Number: PHEH2012US016347

PATIENT
  Age: 51 Year
  Sex: Female

DRUGS (2)
  1. GILENYA [Suspect]
     Indication: MULTIPLE SCLEROSIS
     Route: 048
     Dates: start: 20120806
  2. SYNTHROID (LEVOTHYROXINE SODIUM) [Concomitant]

REACTIONS (7)
  - Eye disorder [None]
  - Eye pruritus [None]
  - Nausea [None]
  - Weight increased [None]
  - Influenza [None]
  - Paraesthesia [None]
  - Diarrhoea [None]
